FAERS Safety Report 21957569 (Version 2)
Quarter: 2023Q1

REPORT INFORMATION
  Report Type: Report from Study
  Country: US (occurrence: US)
  Receive Date: 20230206
  Receipt Date: 20230224
  Transmission Date: 20230417
  Serious: Yes (Hospitalization)
  Sender: FDA-Public Use
  Company Number: US-BAYER-2023P006726

PATIENT
  Age: 31 Year
  Sex: Female
  Weight: 117.93 kg

DRUGS (5)
  1. ADEMPAS [Suspect]
     Active Substance: RIOCIGUAT
     Indication: Pulmonary arterial hypertension
     Dosage: UNK
     Dates: start: 20210316
  2. ADEMPAS [Suspect]
     Active Substance: RIOCIGUAT
     Indication: Pulmonary arterial hypertension
     Dosage: 2.5 MG, TID
     Route: 048
  3. ADEMPAS [Suspect]
     Active Substance: RIOCIGUAT
     Indication: Pulmonary arterial hypertension
     Dosage: 2.5 MG, TID
     Route: 048
  4. OPSUMIT [Concomitant]
     Active Substance: MACITENTAN
  5. ELIQUIS [Concomitant]
     Active Substance: APIXABAN

REACTIONS (6)
  - Cardiac operation [None]
  - Lung operation [None]
  - Cardiac operation [None]
  - Lung operation [None]
  - Catheterisation cardiac [Unknown]
  - Angioplasty [Unknown]

NARRATIVE: CASE EVENT DATE: 20230106
